FAERS Safety Report 6916268-3 (Version None)
Quarter: 2010Q3

REPORT INFORMATION
  Report Type: 
  Country: None (occurrence: None)
  Receive Date: 20100810
  Receipt Date: 20100729
  Transmission Date: 20110219
  Serious: Yes (Hospitalization)
  Sender: FDA-Public Use
  Company Number: ES-PFIZER INC-2010078726

PATIENT
  Age: 61 Year
  Sex: Female

DRUGS (7)
  1. SUNITINIB MALATE [Suspect]
     Indication: RENAL CELL CARCINOMA
     Dosage: 37.5 MG, 1X/DAY
     Route: 048
     Dates: start: 20091107
  2. OMEPRAZOLE [Concomitant]
     Dosage: UNK
     Dates: start: 20091118
  3. IBUPROFEN [Concomitant]
     Dosage: UNK
     Dates: start: 20091209
  4. DIAZEPAM [Concomitant]
     Dosage: UNK
     Dates: start: 20091118
  5. ZOLEDRONIC ACID [Concomitant]
     Dosage: UNK
     Dates: start: 20100118
  6. LEVOTHYROXINE SODIUM [Concomitant]
     Dosage: UNK
     Dates: start: 20100603
  7. FORTECORTIN [Concomitant]
     Dosage: UNK
     Dates: start: 20100603

REACTIONS (1)
  - MUSCULAR WEAKNESS [None]
